FAERS Safety Report 15296982 (Version 3)
Quarter: 2020Q2

REPORT INFORMATION
  Report Type: Spontaneous
  Country: JP (occurrence: JP)
  Receive Date: 20180820
  Receipt Date: 20200611
  Transmission Date: 20200713
  Serious: Yes (Other)
  Sender: FDA-Public Use
  Company Number: JP-BRISTOL-MYERS SQUIBB COMPANY-BMS-2016-114009

PATIENT
  Age: 69 Year
  Sex: Male

DRUGS (1)
  1. NIVOLUMAB [Suspect]
     Active Substance: NIVOLUMAB
     Indication: NON-SMALL CELL LUNG CANCER RECURRENT
     Dosage: UNK
     Route: 041
     Dates: start: 20150108, end: 20161124

REACTIONS (12)
  - Blood creatinine increased [Unknown]
  - Hypoalbuminaemia [Unknown]
  - Fall [Unknown]
  - Nocturia [Unknown]
  - Weight increased [Unknown]
  - Rash [Unknown]
  - Malignant neoplasm progression [Unknown]
  - Hyperkalaemia [Unknown]
  - Dry skin [Unknown]
  - Pruritus [Unknown]
  - Arthritis [Unknown]
  - Intentional product use issue [Unknown]

NARRATIVE: CASE EVENT DATE: 20150217
